FAERS Safety Report 7673563-0 (Version None)
Quarter: 2011Q3

REPORT INFORMATION
  Report Type: 
  Country: None (occurrence: None)
  Receive Date: 20110804
  Receipt Date: 20110726
  Transmission Date: 20111222
  Serious: Yes (Hospitalization, Other)
  Sender: FDA-Public Use
  Company Number: DK-1183873

PATIENT
  Age: 27 Year
  Sex: Male
  Weight: 88 kg

DRUGS (1)
  1. NEVANAC [Suspect]
     Indication: EYE OPERATION
     Dosage: (BID OPHTHALMIC)
     Route: 047
     Dates: start: 20100801, end: 20101017

REACTIONS (4)
  - DEPRESSION [None]
  - NAUSEA [None]
  - EYE PRURITUS [None]
  - DRY EYE [None]
